FAERS Safety Report 11483368 (Version 1)
Quarter: 2015Q3

REPORT INFORMATION
  Report Type: Spontaneous
  Country: US (occurrence: US)
  Receive Date: 20150903
  Receipt Date: 20150903
  Transmission Date: 20151125
  Serious: No
  Sender: FDA-Public Use
  Company Number: US-ELI_LILLY_AND_COMPANY-US201206005734

PATIENT
  Age: 63 Year
  Sex: Male

DRUGS (1)
  1. CYMBALTA [Suspect]
     Active Substance: DULOXETINE HYDROCHLORIDE
     Indication: BACK PAIN
     Dosage: 30 MG, QD

REACTIONS (10)
  - Product tampering [Unknown]
  - Thinking abnormal [Recovering/Resolving]
  - Tremor [Not Recovered/Not Resolved]
  - Chest discomfort [Recovering/Resolving]
  - Confusional state [Recovering/Resolving]
  - Disturbance in attention [Not Recovered/Not Resolved]
  - Balance disorder [Recovering/Resolving]
  - Vision blurred [Not Recovered/Not Resolved]
  - Tinnitus [Recovering/Resolving]
  - Dysgeusia [Not Recovered/Not Resolved]
